FAERS Safety Report 13250613 (Version 1)
Quarter: 2017Q1

REPORT INFORMATION
  Report Type: Spontaneous
  Country: CA (occurrence: CA)
  Receive Date: 20170219
  Receipt Date: 20170219
  Transmission Date: 20170428
  Serious: Yes (Other)
  Sender: FDA-Public Use
  Company Number: CA-CONCORDIA PHARMACEUTICALS INC.-GSH201702-001177

PATIENT
  Age: 36 Year
  Sex: Female

DRUGS (14)
  1. APO-NAPROXEN %00 MG TABLET [Concomitant]
  2. FOLIC ACID. [Concomitant]
     Active Substance: FOLIC ACID
  3. PLAQUENIL [Suspect]
     Active Substance: HYDROXYCHLOROQUINE SULFATE
     Indication: RHEUMATOID ARTHRITIS
     Dosage: 2 TABS AT BEDTIME DAILY
     Route: 048
  4. METHOTREXATE SODIUM. [Suspect]
     Active Substance: METHOTREXATE SODIUM
     Dosage: 15MG FOR 3 WEEKS
     Route: 048
  5. METHOTREXATE SODIUM. [Suspect]
     Active Substance: METHOTREXATE SODIUM
     Dosage: 20MG FOR 3 MONTHS
     Route: 048
     Dates: end: 201508
  6. ARAVA [Suspect]
     Active Substance: LEFLUNOMIDE
     Indication: RHEUMATOID ARTHRITIS
     Route: 048
  7. ERGOCALCIFEROL TABLET [Concomitant]
     Dosage: 1000 UNIT/ML , 2000 UNIT DAILY
     Route: 048
  8. METHOTREXATE SODIUM. [Suspect]
     Active Substance: METHOTREXATE SODIUM
     Indication: RHEUMATOID ARTHRITIS
     Dosage: 10 MG FOR 2 WEEKS
     Route: 048
  9. APO-PREDNISONE 5 MG TABLET [Concomitant]
  10. LEUCOVORIN CALCIUM TABLET [Concomitant]
     Dosage: 1 TAB A WEEK
  11. ASCORBIC ACID CAPSULE [Concomitant]
     Route: 048
  12. TECTA TABLET [Concomitant]
     Dosage: 1 TAB A DAY
  13. WELLBUTRIN XLJ 300 MG TABLET [Concomitant]
  14. SULFASALAZINE. [Concomitant]
     Active Substance: SULFASALAZINE

REACTIONS (13)
  - Condition aggravated [Unknown]
  - Thirst [Unknown]
  - Drug effect incomplete [Unknown]
  - Fatigue [Unknown]
  - Upper respiratory tract infection [Unknown]
  - Rheumatoid arthritis [Unknown]
  - Tremor [Unknown]
  - Anxiety [Unknown]
  - Headache [Unknown]
  - Gastrointestinal disorder [Unknown]
  - Dry eye [Unknown]
  - Drug intolerance [Unknown]
  - Feeling abnormal [Unknown]
